FAERS Safety Report 11097669 (Version 1)
Quarter: 2015Q2

REPORT INFORMATION
  Report Type: Spontaneous
  Country: GB (occurrence: GB)
  Receive Date: 20150507
  Receipt Date: 20150507
  Transmission Date: 20150821
  Serious: Yes (Death)
  Sender: FDA-Public Use
  Company Number: GB-WATSON-2004B-01442

PATIENT
  Age: 21 Year
  Sex: Female

DRUGS (5)
  1. VENLAFAXINE (UNKNOWN) [Suspect]
     Active Substance: VENLAFAXINE HYDROCHLORIDE
     Indication: PRODUCT USED FOR UNKNOWN INDICATION
     Dosage: UNK (DOSAGE FORM: UNSPECIFIED, DAILY DOSE TEXT: UNKNOWN)
     Route: 065
  2. PARACETAMOL  (UNKNOWN) [Suspect]
     Active Substance: ACETAMINOPHEN
     Indication: PRODUCT USED FOR UNKNOWN INDICATION
     Dosage: UNK (DOSAGE FORM: UNSPECIFIED, DAILY DOSE TEXT: UNKNOWN)
     Route: 065
  3. DEXTROPROPOXYPHENE [Suspect]
     Active Substance: PROPOXYPHENE HYDROCHLORIDE
     Indication: PRODUCT USED FOR UNKNOWN INDICATION
     Dosage: UNK (DOSAGE FORM: UNSPECIFIED, DAILY DOSE TEXT: UNKNOWN)
     Route: 065
  4. ZOLPIDEM [Suspect]
     Active Substance: ZOLPIDEM\ZOLPIDEM TARTRATE
     Indication: PRODUCT USED FOR UNKNOWN INDICATION
     Dosage: UNK (DOSAGE FORM: UNSPECIFIED, DAILY DOSE TEXT: UNKNOWN)
     Route: 065
  5. MIRTAZAPINE (UNKNOWN) [Suspect]
     Active Substance: MIRTAZAPINE
     Indication: PRODUCT USED FOR UNKNOWN INDICATION
     Dosage: UNK (DOSAGE FORM: UNSPECIFIED, DAILY DOSE TEXT: UNKNOWN)
     Route: 065

REACTIONS (1)
  - Sudden death [Fatal]
